FAERS Safety Report 7552127-3 (Version None)
Quarter: 2011Q2

REPORT INFORMATION
  Report Type: 
  Country: None (occurrence: None)
  Receive Date: 20110616
  Receipt Date: 20110608
  Transmission Date: 20111010
  Serious: Yes (Other)
  Sender: FDA-Public Use
  Company Number: US-US-EMD SERONO, INC.-7062963

PATIENT
  Sex: Female
  Weight: 119 kg

DRUGS (5)
  1. REBIF [Suspect]
     Indication: RELAPSING-REMITTING MULTIPLE SCLEROSIS
     Route: 058
     Dates: start: 20090403
  2. NUEDEXTA [Concomitant]
     Indication: AFFECT LABILITY
     Dates: start: 20110214
  3. EFFEXOR XR [Concomitant]
     Indication: DEPRESSION
  4. REBIF [Suspect]
     Route: 058
     Dates: start: 20090403
  5. XANAX [Concomitant]
     Indication: ANXIETY
     Dates: start: 20101011

REACTIONS (7)
  - INJECTION SITE ERYTHEMA [None]
  - HEADACHE [None]
  - NUCLEAR MAGNETIC RESONANCE IMAGING ABNORMAL [None]
  - URINARY TRACT INFECTION [None]
  - OPTIC NEURITIS [None]
  - DISEASE PROGRESSION [None]
  - INJECTION SITE HAEMATOMA [None]
